FAERS Safety Report 5492725-4 (Version None)
Quarter: 2007Q4

REPORT INFORMATION
  Report Type: 
  Country: None (occurrence: None)
  Receive Date: 20071023
  Receipt Date: 20071012
  Transmission Date: 20080405
  Serious: Yes (Other)
  Sender: FDA-Public Use
  Company Number: HQWYE135610AUG04

PATIENT
  Sex: Female

DRUGS (4)
  1. PREMPRO [Suspect]
  2. PROVERA [Suspect]
  3. ESTROGENS [Suspect]
  4. CONJUGATED ESTROGENS [Suspect]

REACTIONS (2)
  - BREAST CANCER [None]
  - SYSTEMIC LUPUS ERYTHEMATOSUS [None]
